FAERS Safety Report 20826667 (Version 1)
Quarter: 2022Q2

REPORT INFORMATION
  Report Type: Spontaneous
  Country: US (occurrence: US)
  Receive Date: 20220513
  Receipt Date: 20220513
  Transmission Date: 20220720
  Serious: Yes (Other)
  Sender: FDA-Public Use
  Company Number: US-ELI_LILLY_AND_COMPANY-US202205001770

PATIENT
  Sex: Female

DRUGS (5)
  1. HUMALOG [Suspect]
     Active Substance: INSULIN LISPRO
     Indication: Type 2 diabetes mellitus
     Dosage: 3 U, PRN
     Route: 065
     Dates: start: 2007
  2. HUMALOG [Suspect]
     Active Substance: INSULIN LISPRO
     Indication: Type 2 diabetes mellitus
     Dosage: 3 U, PRN
     Route: 065
     Dates: start: 2007
  3. HUMALOG [Suspect]
     Active Substance: INSULIN LISPRO
     Dosage: 3 U, PRN
     Route: 065
     Dates: start: 2007
  4. HUMALOG [Suspect]
     Active Substance: INSULIN LISPRO
     Dosage: 3 U, PRN
     Route: 065
     Dates: start: 2007
  5. JARDIANCE [Concomitant]
     Active Substance: EMPAGLIFLOZIN
     Indication: Glycosylated haemoglobin increased
     Dosage: 25 MG, DAILY
     Dates: start: 2017

REACTIONS (17)
  - Arteriosclerosis [Unknown]
  - Cerebrovascular accident [Unknown]
  - Limb injury [Unknown]
  - Fall [Unknown]
  - Neuropathy peripheral [Unknown]
  - Blindness [Unknown]
  - Epiretinal membrane [Unknown]
  - Blood glucose increased [Unknown]
  - Glycosylated haemoglobin increased [Unknown]
  - Vulvovaginal mycotic infection [Unknown]
  - Aphasia [Unknown]
  - Cataract [Unknown]
  - Vitreous loss [Unknown]
  - Carpal tunnel syndrome [Unknown]
  - Diabetes mellitus inadequate control [Unknown]
  - Fatigue [Unknown]
  - Incorrect dose administered [Unknown]

NARRATIVE: CASE EVENT DATE: 20090101
